FAERS Safety Report 6675043-8 (Version None)
Quarter: 2010Q2

REPORT INFORMATION
  Report Type: 
  Country: None (occurrence: None)
  Receive Date: 20100409
  Receipt Date: 20100402
  Transmission Date: 20101027
  Serious: Yes (Other)
  Sender: FDA-Public Use
  Company Number: JP-BRISTOL-MYERS SQUIBB COMPANY-15044498

PATIENT
  Age: 57 Year
  Sex: Male
  Weight: 62 kg

DRUGS (6)
  1. ERBITUX [Suspect]
     Indication: RECTAL CANCER
     Dosage: IV DRIP; 400MG 1 IN 1 WEEK(16-JUL-09) 09JUL09:600MG 16JUL09:400MG
     Route: 041
     Dates: start: 20090709
  2. POLARAMINE [Concomitant]
     Indication: PREMEDICATION
     Route: 041
     Dates: start: 20090709
  3. ASPIRIN [Concomitant]
     Indication: THROMBOSIS PROPHYLAXIS
     Route: 048
     Dates: start: 20090723
  4. FLUOROURACIL [Concomitant]
     Indication: RECTAL CANCER
     Route: 065
     Dates: start: 20080424, end: 20090409
  5. CALCIUM FOLINATE [Concomitant]
     Indication: RECTAL CANCER
     Route: 065
     Dates: start: 20080424, end: 20090409
  6. OXALIPLATIN [Concomitant]
     Indication: RECTAL CANCER
     Route: 065
     Dates: start: 20080424, end: 20090409

REACTIONS (2)
  - HYPOCALCAEMIA [None]
  - TETANY [None]
